FAERS Safety Report 25171607 (Version 1)
Quarter: 2025Q2

REPORT INFORMATION
  Report Type: Spontaneous
  Country: CA (occurrence: CA)
  Receive Date: 20250408
  Receipt Date: 20250408
  Transmission Date: 20250716
  Serious: Yes (Other)
  Sender: BAUSCH AND LOMB
  Company Number: CA-BAUSCH-BL-2025-004547

PATIENT
  Age: 43 Year
  Sex: Female

DRUGS (1)
  1. METRONIDAZOLE [Suspect]
     Active Substance: METRONIDAZOLE
     Indication: Clostridium difficile infection
     Route: 065

REACTIONS (5)
  - Hallucination, auditory [Recovered/Resolved]
  - Hypoaesthesia [Recovered/Resolved]
  - Neuropathy peripheral [Recovered/Resolved]
  - Paraesthesia [Recovered/Resolved]
  - Intentional product use issue [Recovered/Resolved]
